FAERS Safety Report 14462933 (Version 1)
Quarter: 2018Q1

REPORT INFORMATION
  Report Type: Spontaneous
  Country: CZ (occurrence: CZ)
  Receive Date: 20180130
  Receipt Date: 20180130
  Transmission Date: 20180509
  Serious: Yes (Other)
  Sender: FDA-Public Use
  Company Number: CZ-TEVA-2018-CZ-849336

PATIENT
  Age: 77 Year
  Sex: Male

DRUGS (11)
  1. CAPECITABINE. [Suspect]
     Active Substance: CAPECITABINE
     Dosage: 2-0-2
     Route: 065
     Dates: start: 2009
  2. GLUCOPHAGE [Concomitant]
     Active Substance: METFORMIN HYDROCHLORIDE
     Route: 065
  3. CAPECITABINE. [Suspect]
     Active Substance: CAPECITABINE
     Dosage: 4-0-4
     Route: 065
     Dates: start: 2009, end: 2009
  4. FLUOROURACIL. [Suspect]
     Active Substance: FLUOROURACIL
     Indication: COLON CANCER METASTATIC
     Route: 065
     Dates: start: 200806
  5. RILMENIDINE [Concomitant]
     Active Substance: RILMENIDINE
     Route: 065
  6. OMNIC TOCAS [Concomitant]
     Route: 065
  7. OXALIPLATIN. [Suspect]
     Active Substance: OXALIPLATIN
     Indication: COLON CANCER METASTATIC
     Route: 065
     Dates: start: 200806, end: 200811
  8. MICARDIS [Concomitant]
     Active Substance: TELMISARTAN
     Route: 065
  9. CAPECITABINE. [Suspect]
     Active Substance: CAPECITABINE
     Indication: COLON CANCER METASTATIC
     Dosage: 3-0-3
     Route: 065
     Dates: start: 2009, end: 2009
  10. BEVACIZUMAB. [Suspect]
     Active Substance: BEVACIZUMAB
     Indication: COLON CANCER METASTATIC
     Route: 065
     Dates: start: 200806, end: 201403
  11. FOLINIC ACID [Suspect]
     Active Substance: LEUCOVORIN
     Indication: COLON CANCER METASTATIC
     Route: 065
     Dates: start: 200806

REACTIONS (4)
  - Neuropathy peripheral [Unknown]
  - Catheter site pain [Unknown]
  - Catheter site erythema [Unknown]
  - Hypertension [Unknown]

NARRATIVE: CASE EVENT DATE: 200901
